FAERS Safety Report 25240866 (Version 6)
Quarter: 2025Q3

REPORT INFORMATION
  Report Type: Spontaneous
  Country: CA (occurrence: CA)
  Receive Date: 20250425
  Receipt Date: 20250704
  Transmission Date: 20251020
  Serious: Yes (Other)
  Sender: BAUSCH AND LOMB
  Company Number: CA-BAUSCH-BL-2025-005282

PATIENT
  Sex: Female

DRUGS (1)
  1. UCERIS [Suspect]
     Active Substance: BUDESONIDE
     Indication: Product used for unknown indication
     Route: 054
     Dates: start: 20250312

REACTIONS (6)
  - Rectal haemorrhage [Unknown]
  - Product packaging quantity issue [Unknown]
  - Product delivery mechanism issue [Unknown]
  - Product prescribing issue [Unknown]
  - Product use issue [Unknown]
  - Product quality issue [Unknown]

NARRATIVE: CASE EVENT DATE: 20250301
